FAERS Safety Report 7633577-3 (Version None)
Quarter: 2011Q3

REPORT INFORMATION
  Report Type: 
  Country: None (occurrence: None)
  Receive Date: 20110725
  Receipt Date: 20110706
  Transmission Date: 20111222
  Serious: Yes (Hospitalization)
  Sender: FDA-Public Use
  Company Number: US-GLAXOSMITHKLINE-A0872099A

PATIENT
  Age: 51 Year
  Sex: Female
  Weight: 79.1 kg

DRUGS (4)
  1. TOPROL-XL [Concomitant]
  2. EFFEXOR XR [Concomitant]
  3. AVANDIA [Suspect]
     Indication: DIABETES MELLITUS
     Route: 048
  4. ASPIRIN [Concomitant]

REACTIONS (12)
  - LACRIMATION DECREASED [None]
  - DYSPNOEA [None]
  - SURGERY [None]
  - VISUAL IMPAIRMENT [None]
  - PNEUMONIA [None]
  - DIPLOPIA [None]
  - SWELLING [None]
  - THROMBOSIS [None]
  - SINUS DISORDER [None]
  - PERIPHERAL ISCHAEMIA [None]
  - VISION BLURRED [None]
  - HYPERTENSION [None]
